FAERS Safety Report 18611270 (Version 3)
Quarter: 2021Q2

REPORT INFORMATION
  Report Type: Spontaneous
  Country: US (occurrence: US)
  Receive Date: 20201214
  Receipt Date: 20210604
  Transmission Date: 20210717
  Serious: Yes (Disabling, Other)
  Sender: FDA-Public Use
  Company Number: US-ENDO PHARMACEUTICALS INC-2020-007693

PATIENT
  Sex: Male
  Weight: 68.03 kg

DRUGS (13)
  1. PERCOCET [Suspect]
     Active Substance: ACETAMINOPHEN\OXYCODONE HYDROCHLORIDE
     Indication: PAIN
  2. OXYCODONE [Suspect]
     Active Substance: OXYCODONE
     Indication: ARTHRALGIA
  3. PERCOCET [Suspect]
     Active Substance: ACETAMINOPHEN\OXYCODONE HYDROCHLORIDE
     Indication: ARTHRALGIA
  4. OXYCONTIN [Suspect]
     Active Substance: OXYCODONE HYDROCHLORIDE
     Indication: ARTHRALGIA
  5. SUBUTON [Concomitant]
     Indication: PRODUCT USED FOR UNKNOWN INDICATION
     Dosage: UNK UNKNOWN, UNKNOWN
     Route: 065
     Dates: start: 20131113
  6. ENDOCET [Suspect]
     Active Substance: ACETAMINOPHEN\OXYCODONE HYDROCHLORIDE
     Indication: PRODUCT USED FOR UNKNOWN INDICATION
     Dosage: UNK UNKNOWN, UNKNOWN
     Route: 065
  7. OXYCONTIN [Suspect]
     Active Substance: OXYCODONE HYDROCHLORIDE
     Indication: ANXIETY
  8. OXYCODONE [Suspect]
     Active Substance: OXYCODONE
     Indication: EMOTIONAL DISTRESS
     Dosage: 80 MG, DAILY
     Route: 048
     Dates: start: 200805, end: 201703
  9. ROXICODONE [Concomitant]
     Active Substance: OXYCODONE HYDROCHLORIDE
     Indication: ANXIETY
     Dosage: 90 MG, DAILY
     Route: 048
     Dates: start: 201104, end: 201503
  10. PERCOCET [Suspect]
     Active Substance: ACETAMINOPHEN\OXYCODONE HYDROCHLORIDE
     Indication: EMOTIONAL DISTRESS
     Dosage: UNK UNKNOWN, UNKNOWN
     Route: 048
     Dates: start: 20080513, end: 20170323
  11. SUBUTEX [Concomitant]
     Active Substance: BUPRENORPHINE HYDROCHLORIDE
     Indication: ANXIETY
     Dosage: 8 MG, DAILY
     Route: 048
     Dates: start: 201703
  12. OXYCONTIN [Suspect]
     Active Substance: OXYCODONE HYDROCHLORIDE
     Indication: EMOTIONAL DISTRESS
     Dosage: 80 MG, DAILY
     Route: 048
     Dates: start: 201203, end: 201703
  13. OXYCODONE [Suspect]
     Active Substance: OXYCODONE
     Indication: ANXIETY

REACTIONS (4)
  - Weight decreased [Unknown]
  - Mental disorder [Not Recovered/Not Resolved]
  - Syncope [Not Recovered/Not Resolved]
  - Drug dependence [Recovering/Resolving]
